FAERS Safety Report 7125358-4 (Version None)
Quarter: 2010Q4

REPORT INFORMATION
  Report Type: 
  Country: None (occurrence: None)
  Receive Date: 20101129
  Receipt Date: 20101118
  Transmission Date: 20110411
  Serious: Yes (Other)
  Sender: FDA-Public Use
  Company Number: PHHY2010ZA78670

PATIENT

DRUGS (1)
  1. RITALIN [Suspect]

REACTIONS (1)
  - VISUAL IMPAIRMENT [None]
